FAERS Safety Report 12953418 (Version 3)
Quarter: 2016Q4

REPORT INFORMATION
  Report Type: Spontaneous
  Country: CN (occurrence: CN)
  Receive Date: 20161117
  Receipt Date: 20161227
  Transmission Date: 20170207
  Serious: Yes (Death)
  Sender: FDA-Public Use
  Company Number: CN-SA-2016SA207123

PATIENT
  Age: 13 Year

DRUGS (3)
  1. PLATELETS [Concomitant]
     Active Substance: HUMAN PLATELET, ALLOGENIC
  2. THYMOGLOBULINE [Suspect]
     Active Substance: LAPINE T-LYMPHOCYTE IMMUNE GLOBULIN
     Indication: APLASTIC ANAEMIA
     Dosage: 950MG (TOTAL DOSE) FOR 5?DAYS
     Route: 042
     Dates: start: 20161107, end: 20161111
  3. THYMOGLOBULINE [Suspect]
     Active Substance: LAPINE T-LYMPHOCYTE IMMUNE GLOBULIN
     Indication: APLASTIC ANAEMIA
     Dosage: 950MG (TOTAL DOSE) FOR 5?DAYS
     Route: 042
     Dates: start: 20161107, end: 20161111

REACTIONS (2)
  - Haemorrhage intracranial [Fatal]
  - Mydriasis [Fatal]

NARRATIVE: CASE EVENT DATE: 20161112
